FAERS Safety Report 6158796-7 (Version None)
Quarter: 2009Q2

REPORT INFORMATION
  Report Type: 
  Country: None (occurrence: None)
  Receive Date: 20090414
  Receipt Date: 20081201
  Transmission Date: 20091009
  Serious: Yes (Hospitalization)
  Sender: FDA-Public Use
  Company Number: 2008-07121

PATIENT
  Age: 75 Year
  Sex: Female

DRUGS (3)
  1. FERRLECIT [Suspect]
     Indication: DRUG USE FOR UNKNOWN INDICATION
     Dosage: 62.5 MG, SINGLE
     Dates: start: 20080919, end: 20080919
  2. ZEMPLAR [Concomitant]
  3. EPOGEN [Concomitant]

REACTIONS (2)
  - DIARRHOEA [None]
  - INFECTION [None]
